FAERS Safety Report 8188345-3 (Version None)
Quarter: 2012Q1

REPORT INFORMATION
  Report Type: 
  Country: None (occurrence: None)
  Receive Date: 20120306
  Receipt Date: 20120228
  Transmission Date: 20120608
  Serious: Yes (Hospitalization)
  Sender: FDA-Public Use
  Company Number: FR-B.I. PHARMACEUTICALS,INC./RIDGEFIELD-2012-FF-00252FF

PATIENT
  Sex: Female
  Weight: 42 kg

DRUGS (3)
  1. LANSOPRAZOLE [Concomitant]
  2. URBANYL [Concomitant]
  3. PRAMIPEXOLE DIHYDROCHLORIDE [Suspect]
     Indication: RESTLESS LEGS SYNDROME
     Dates: start: 20110907, end: 20120202

REACTIONS (2)
  - WEIGHT DECREASED [None]
  - DECREASED APPETITE [None]
